FAERS Safety Report 24287109 (Version 1)
Quarter: 2024Q3

REPORT INFORMATION
  Report Type: Spontaneous
  Country: US (occurrence: None)
  Receive Date: 20240904
  Receipt Date: 20240904
  Transmission Date: 20241017
  Serious: No
  Sender: Public
  Company Number: None

PATIENT
  Age: 91 Year
  Sex: Male
  Weight: 76.5 kg

DRUGS (1)
  1. XTANDI [Suspect]
     Active Substance: ENZALUTAMIDE
     Indication: Bone neoplasm
     Dosage: 160 MG DAILY ORAL
     Route: 048
     Dates: start: 20240610

REACTIONS (1)
  - Testicular pain [None]

NARRATIVE: CASE EVENT DATE: 20240904
